FAERS Safety Report 9980439 (Version 1)
Quarter: 2014Q1

REPORT INFORMATION
  Report Type: Spontaneous
  Country: BR (occurrence: BR)
  Receive Date: 20140307
  Receipt Date: 20140307
  Transmission Date: 20141002
  Serious: Yes (Other)
  Sender: FDA-Public Use
  Company Number: BR-AMGEN-BRASP2014015966

PATIENT
  Age: 15 Year
  Sex: Female
  Weight: 56 kg

DRUGS (2)
  1. ENBREL [Suspect]
     Indication: JUVENILE IDIOPATHIC ARTHRITIS
     Dosage: STRENGTH 50MG, 0.7ML ONCE WEEKLY
     Route: 058
     Dates: start: 2012, end: 201401
  2. ENBREL [Suspect]
     Dosage: 50 MG, WEEKLY
     Route: 065
     Dates: start: 201402

REACTIONS (7)
  - Juvenile idiopathic arthritis [Unknown]
  - Hydronephrosis [Unknown]
  - Kidney enlargement [Unknown]
  - Renal disorder [Unknown]
  - Joint effusion [Unknown]
  - Off label use [Not Recovered/Not Resolved]
  - Expired drug administered [Unknown]
